FAERS Safety Report 7499029-9 (Version None)
Quarter: 2011Q2

REPORT INFORMATION
  Report Type: 
  Country: None (occurrence: None)
  Receive Date: 20110524
  Receipt Date: 20110426
  Transmission Date: 20111010
  Serious: Yes (Hospitalization, Other)
  Sender: FDA-Public Use
  Company Number: US-BAYER-200934756NA

PATIENT
  Age: 39 Year
  Sex: Female
  Weight: 87.528 kg

DRUGS (21)
  1. YASMIN [Suspect]
     Indication: CONTRACEPTION
     Dosage: 3 ONCE A DAY
     Route: 048
     Dates: start: 20050601, end: 20050801
  2. YAZ [Suspect]
     Indication: CONTRACEPTION
     Dosage: UNK
     Dates: start: 20080201, end: 20080401
  3. PRENATAL VITAMINS [Concomitant]
     Indication: MEDICAL DIET
     Route: 065
     Dates: start: 20080101
  4. METFORMIN HCL [Concomitant]
     Dosage: 200 MG (DAILY DOSE), BID, UNKNOWN
     Route: 065
     Dates: start: 20070101, end: 20090101
  5. AMOXICILLIN [Concomitant]
     Indication: ANTIBIOTIC THERAPY
     Dosage: 500 MG (DAILY DOSE), QD, UNKNOWN
     Route: 065
     Dates: start: 20081222, end: 20090101
  6. PROZAC [Concomitant]
     Indication: DEPRESSION
     Route: 065
     Dates: start: 20080101, end: 20100101
  7. ZOLOFT [Concomitant]
  8. ATENOLOL [Concomitant]
     Indication: BLOOD PRESSURE MANAGEMENT
     Dosage: 50 MG (DAILY DOSE), QD, UNKNOWN
     Route: 065
     Dates: start: 20070101
  9. NORCO [Concomitant]
     Route: 048
  10. VICODIN [Concomitant]
  11. YAZ [Suspect]
     Indication: MENSTRUATION IRREGULAR
  12. PRILOSEC [Concomitant]
  13. PHENTERMINE [Concomitant]
     Indication: ANTIALLERGIC THERAPY
     Route: 065
     Dates: start: 20080101
  14. HYDROXYZINE [Concomitant]
     Indication: ANTIALLERGIC THERAPY
     Route: 065
     Dates: start: 20070101
  15. FIORICET [Concomitant]
     Indication: ANTIBIOTIC THERAPY
     Route: 065
     Dates: start: 20080101, end: 20100101
  16. METFORMIN HCL [Concomitant]
     Indication: POLYCYSTIC OVARIES
     Dosage: 1000 MG (DAILY DOSE), BID, UNKNOWN
     Route: 065
     Dates: start: 20070101, end: 20090101
  17. FLEXERIL [Concomitant]
     Indication: BACK PAIN
     Route: 048
  18. SERTRALINE HYDROCHLORIDE [Concomitant]
     Dosage: 50 MG, UNK
     Route: 048
  19. PEPCID [Concomitant]
     Route: 048
  20. SYNTHROID [Concomitant]
     Indication: BLOOD PRESSURE MANAGEMENT
     Route: 065
     Dates: start: 20071001, end: 20090101
  21. FIORICET [Concomitant]
     Indication: HEADACHE

REACTIONS (10)
  - ANXIETY [None]
  - CHOLECYSTITIS CHRONIC [None]
  - CHOLELITHIASIS [None]
  - PAIN [None]
  - PORTAL VEIN THROMBOSIS [None]
  - ABDOMINAL PAIN UPPER [None]
  - GALLBLADDER CHOLESTEROLOSIS [None]
  - NAUSEA [None]
  - VOMITING [None]
  - MUCOSAL EROSION [None]
